FAERS Safety Report 18976090 (Version 1)
Quarter: 2021Q1

REPORT INFORMATION
  Report Type: Spontaneous
  Country: IT (occurrence: IT)
  Receive Date: 20210306
  Receipt Date: 20210306
  Transmission Date: 20210420
  Serious: Yes (Other)
  Sender: FDA-Public Use
  Company Number: IT-LUPIN PHARMACEUTICALS INC.-2021-02716

PATIENT
  Age: 65 Year
  Sex: Male

DRUGS (10)
  1. RITONAVIR. [Suspect]
     Active Substance: RITONAVIR
     Indication: COVID-19 PNEUMONIA
     Dosage: 100 MILLIGRAM, QD
     Route: 065
     Dates: start: 202003
  2. PEMBROLIZUMAB. [Concomitant]
     Active Substance: PEMBROLIZUMAB
     Dosage: UNK (RESTARTED)
     Route: 065
  3. CARBOPLATIN. [Concomitant]
     Active Substance: CARBOPLATIN
     Indication: NON-SMALL CELL LUNG CANCER STAGE IV
     Dosage: UNK (STOPPED)
     Route: 065
     Dates: start: 20200306
  4. PEMBROLIZUMAB. [Concomitant]
     Active Substance: PEMBROLIZUMAB
     Indication: NON-SMALL CELL LUNG CANCER STAGE IV
     Dosage: UNK (STOPPED)
     Route: 065
     Dates: start: 20200306
  5. HYDROXYCHLOROQUINE [Suspect]
     Active Substance: HYDROXYCHLOROQUINE
     Indication: COVID-19 PNEUMONIA
     Dosage: 200 MILLIGRAM, BID
     Route: 065
     Dates: start: 202003
  6. DARUNAVIR [Suspect]
     Active Substance: DARUNAVIR
     Indication: COVID-19 PNEUMONIA
     Dosage: 800 MILLIGRAM, QD
     Route: 065
     Dates: start: 202003
  7. CARBOPLATIN. [Concomitant]
     Active Substance: CARBOPLATIN
     Dosage: UNK (RESTARTED )
     Route: 065
  8. PEMETREXED. [Concomitant]
     Active Substance: PEMETREXED
     Indication: NON-SMALL CELL LUNG CANCER STAGE IV
     Dosage: UNK (STOPPED)
     Route: 065
     Dates: start: 20200306
  9. TOCILIZUMAB. [Suspect]
     Active Substance: TOCILIZUMAB
     Indication: COVID-19 PNEUMONIA
     Dosage: 8 MILLIGRAM/KILOGRAM (FIRST DOSE AND SECOND DOSE)
     Route: 065
     Dates: start: 202003
  10. PEMETREXED. [Concomitant]
     Active Substance: PEMETREXED
     Dosage: UNK (RESTARTED)
     Route: 065

REACTIONS (1)
  - Off label use [Unknown]

NARRATIVE: CASE EVENT DATE: 202003
